FAERS Safety Report 5901090-7 (Version None)
Quarter: 2008Q3

REPORT INFORMATION
  Report Type: 
  Country: None (occurrence: None)
  Receive Date: 20080929
  Receipt Date: 20070529
  Transmission Date: 20090109
  Serious: No
  Sender: FDA-Public Use
  Company Number: US-BAYER-200711673BWH

PATIENT
  Age: 80 Year

DRUGS (3)
  1. AVELOX [Suspect]
     Indication: PNEUMONIA
     Dosage: UNIT DOSE: 400 MG
     Route: 042
     Dates: start: 20070524
  2. AVELOX [Suspect]
     Dosage: UNIT DOSE: 400 MG
     Route: 042
     Dates: start: 20070524
  3. AVELOX [Suspect]
     Route: 048
     Dates: start: 20070501

REACTIONS (1)
  - VESSEL PUNCTURE SITE REACTION [None]
